FAERS Safety Report 23650946 (Version 1)
Quarter: 2024Q1

REPORT INFORMATION
  Report Type: Spontaneous
  Country: SG (occurrence: None)
  Receive Date: 20240320
  Receipt Date: 20240320
  Transmission Date: 20240410
  Serious: Yes (Hospitalization)
  Sender: FDA-Public Use
  Company Number: SG-ROCHE-3525320

PATIENT
  Age: 58 Year
  Sex: Male

DRUGS (12)
  1. TECENTRIQ [Suspect]
     Active Substance: ATEZOLIZUMAB
     Indication: Colorectal cancer metastatic
     Route: 041
     Dates: start: 20231024
  2. ZANZALINTINIB [Suspect]
     Active Substance: ZANZALINTINIB
     Indication: Colorectal cancer metastatic
     Dosage: 13/NOV/2023, RECEIVED LAST DOSE
     Route: 048
     Dates: start: 20231024
  3. ACETYLCYSTEINE [Concomitant]
     Active Substance: ACETYLCYSTEINE
     Dates: start: 20231106
  4. AMLODIPINE [Concomitant]
     Active Substance: AMLODIPINE BESYLATE
     Dates: start: 20231030
  5. DEQUALINIUM [Concomitant]
     Active Substance: DEQUALINIUM
     Dates: start: 20231024
  6. DEXTROMETHORPHAN [Concomitant]
     Active Substance: DEXTROMETHORPHAN
     Dates: start: 20231010
  7. KETOPROFEN [Concomitant]
     Active Substance: KETOPROFEN
     Dates: start: 20231030
  8. LACTULOSE [Concomitant]
     Active Substance: LACTULOSE
  9. METOCLOPRAMIDE [Concomitant]
     Active Substance: METOCLOPRAMIDE
     Dates: start: 20221201
  10. NAPROXEN [Concomitant]
     Active Substance: NAPROXEN
     Dates: start: 20221201
  11. ACETAMINOPHEN [Concomitant]
     Active Substance: ACETAMINOPHEN
     Dates: start: 20221201
  12. PREGABALIN [Concomitant]
     Active Substance: PREGABALIN
     Dates: start: 20230824

REACTIONS (4)
  - Back pain [Recovered/Resolved]
  - Pyrexia [Recovered/Resolved]
  - Heart rate increased [Recovered/Resolved]
  - Chills [Recovered/Resolved]

NARRATIVE: CASE EVENT DATE: 20231114
